FAERS Safety Report 8250350-6 (Version None)
Quarter: 2012Q1

REPORT INFORMATION
  Report Type: 
  Country: None (occurrence: None)
  Receive Date: 20120319
  Receipt Date: 20100727
  Transmission Date: 20120608
  Serious: Yes (Other)
  Sender: FDA-Public Use
  Company Number: PHHY2010US49380

PATIENT
  Age: 74 Year
  Sex: Female

DRUGS (4)
  1. ATENOLOL [Concomitant]
  2. TEKTURNA HCT [Suspect]
     Dosage: 300/25 MG
     Dates: start: 20000101
  3. CLONIDINE [Concomitant]
  4. LISINOPRIL [Concomitant]

REACTIONS (3)
  - CARDIAC DISORDER [None]
  - BLOOD PRESSURE DECREASED [None]
  - BLOOD PRESSURE INCREASED [None]
